FAERS Safety Report 6091316-4 (Version None)
Quarter: 2009Q1

REPORT INFORMATION
  Report Type: 
  Country: None (occurrence: None)
  Receive Date: 20090225
  Receipt Date: 20090213
  Transmission Date: 20090719
  Serious: Yes (Hospitalization, Other)
  Sender: FDA-Public Use
  Company Number: US-ROCHE-497283

PATIENT
  Sex: Female

DRUGS (13)
  1. BONIVA [Suspect]
     Indication: OSTEOPOROSIS
     Route: 048
     Dates: start: 20060414, end: 20061201
  2. BONIVA [Suspect]
     Route: 048
     Dates: start: 20071128, end: 20080101
  3. VITAMIN D [Concomitant]
  4. OSCAL [Concomitant]
  5. VITAMIN E [Concomitant]
  6. FOLIC ACID [Concomitant]
  7. FISH OIL [Concomitant]
  8. ASCORBIC ACID [Concomitant]
  9. 1 CONCOMITANT DRUG [Concomitant]
     Dosage: DRUG REPORTED AS PLAQUINAL
  10. METHOTREXATE [Concomitant]
     Dates: start: 20080801
  11. PREDNISONE [Concomitant]
     Dates: start: 20080801
  12. NEXIUM [Concomitant]
  13. LEXAPRO [Concomitant]

REACTIONS (14)
  - ABDOMINAL DISCOMFORT [None]
  - ABDOMINAL PAIN [None]
  - BRONCHITIS [None]
  - DIARRHOEA [None]
  - EROSIVE OESOPHAGITIS [None]
  - GASTRIC DISORDER [None]
  - GASTRITIS EROSIVE [None]
  - GASTROINTESTINAL DISORDER [None]
  - GASTROOESOPHAGEAL REFLUX DISEASE [None]
  - HYPOPHAGIA [None]
  - LUNG NEOPLASM [None]
  - MALAISE [None]
  - NAUSEA [None]
  - WEIGHT DECREASED [None]
